FAERS Safety Report 10569192 (Version 1)
Quarter: 2014Q4

REPORT INFORMATION
  Report Type: Spontaneous
  Country: US (occurrence: US)
  Receive Date: 20141106
  Receipt Date: 20141106
  Transmission Date: 20150529
  Serious: Yes (Other)
  Sender: FDA-Public Use
  Company Number: US-TEVA-519606USA

PATIENT
  Sex: Male

DRUGS (2)
  1. COPAXONE [Suspect]
     Active Substance: GLATIRAMER ACETATE
     Dates: start: 2014
  2. COPAXONE [Suspect]
     Active Substance: GLATIRAMER ACETATE
     Indication: MULTIPLE SCLEROSIS
     Dates: start: 20101015

REACTIONS (10)
  - Immediate post-injection reaction [Unknown]
  - Skin discolouration [Unknown]
  - Venous occlusion [Unknown]
  - Arthritis [Unknown]
  - Injection site pain [Unknown]
  - Muscular weakness [Not Recovered/Not Resolved]
  - Peripheral vascular disorder [Unknown]
  - Injection site mass [Unknown]
  - Peripheral swelling [Unknown]
  - Vein disorder [Unknown]
